FAERS Safety Report 8425262-5 (Version None)
Quarter: 2012Q2

REPORT INFORMATION
  Report Type: 
  Country: None (occurrence: None)
  Receive Date: 20120604
  Receipt Date: 20120524
  Transmission Date: 20120825
  Serious: Yes (Other)
  Sender: FDA-Public Use
  Company Number: IT-008361

PATIENT
  Age: 59 Year
  Sex: Female

DRUGS (3)
  1. MINIRIN [Suspect]
     Indication: PRODUCT USED FOR UNKNOWN INDICATION
     Dosage: (ONE DOSAGE UNIT. ORAL)
     Route: 048
     Dates: start: 20120314, end: 20120315
  2. LEVOTHYROXINE SODIUM [Concomitant]
  3. FLUOXETINE [Concomitant]

REACTIONS (1)
  - CHEST PAIN [None]
